FAERS Safety Report 8582518-3 (Version None)
Quarter: 2012Q3

REPORT INFORMATION
  Report Type: 
  Country: None (occurrence: None)
  Receive Date: 20120809
  Receipt Date: 20120706
  Transmission Date: 20120928
  Serious: No
  Sender: FDA-Public Use
  Company Number: US-ASTRAZENECA-2012SE46271

PATIENT
  Sex: Male

DRUGS (4)
  1. SINGULAIR [Concomitant]
     Route: 048
  2. PULMICORT FLEXHALER [Suspect]
     Indication: ASTHMA
     Dosage: 2 PUFFS BID
     Route: 055
     Dates: start: 20110101, end: 20110101
  3. PULMICORT FLEXHALER [Suspect]
     Dosage: 1 OR 2 PUFFS AS NEEDED
     Route: 055
     Dates: start: 20110101
  4. TOPAMAX [Concomitant]
     Route: 048

REACTIONS (4)
  - NASOPHARYNGITIS [None]
  - OFF LABEL USE [None]
  - INCORRECT STORAGE OF DRUG [None]
  - SEASONAL ALLERGY [None]
